FAERS Safety Report 10379387 (Version 2)
Quarter: 2014Q3

REPORT INFORMATION
  Report Type: Spontaneous
  Country: FR (occurrence: FR)
  Receive Date: 20140812
  Receipt Date: 20140827
  Transmission Date: 20150326
  Serious: Yes (Hospitalization)
  Sender: FDA-Public Use
  Company Number: FR-PFIZER INC-2014222214

PATIENT
  Age: 78 Year
  Sex: Female

DRUGS (14)
  1. CORDARONE [Suspect]
     Active Substance: AMIODARONE HYDROCHLORIDE
     Indication: ATRIAL FIBRILLATION
     Dosage: 1 DF, DAILY
     Route: 048
     Dates: start: 20101209
  2. BISOPROLOL FUMARATE. [Interacting]
     Active Substance: BISOPROLOL FUMARATE
     Indication: CARDIAC FAILURE
     Dosage: UNK
     Route: 048
     Dates: start: 20140103, end: 20140104
  3. FUROSEMIDE RENAUDIN [Interacting]
     Active Substance: FUROSEMIDE
     Dosage: ONE VIAL, 3 TIMES A DAY
     Route: 042
     Dates: start: 20140105, end: 20140107
  4. NEBIVOLOL ACTAVIS [Interacting]
     Active Substance: NEBIVOLOL
     Dosage: 5 MG, DAILY
     Route: 046
  5. KALEORID [Concomitant]
     Active Substance: POTASSIUM CHLORIDE
     Dosage: UNK
     Dates: end: 201401
  6. RISORDAN [Concomitant]
     Active Substance: ISOSORBIDE DINITRATE
     Indication: CARDIOPULMONARY FAILURE
     Dosage: UNK
     Dates: start: 20140103
  7. NEBIVOLOL ACTAVIS [Interacting]
     Active Substance: NEBIVOLOL
     Indication: CARDIAC FAILURE CHRONIC
     Dosage: 1 DF, QD
     Route: 048
     Dates: end: 20140102
  8. FUROSEMIDE RENAUDIN [Interacting]
     Active Substance: FUROSEMIDE
     Indication: CARDIAC FAILURE
     Dosage: TWO VIALS, 3 TIMES A DAY
     Route: 042
     Dates: start: 20140103, end: 20140104
  9. KARDEGIC [Concomitant]
     Active Substance: ASPIRIN LYSINE
     Dosage: UNK
  10. ATACAND [Concomitant]
     Active Substance: CANDESARTAN CILEXETIL
     Dosage: UNK
     Dates: end: 201401
  11. CORDARONE [Interacting]
     Active Substance: AMIODARONE HYDROCHLORIDE
     Dosage: 4 DF, MORNING
     Route: 048
     Dates: start: 20140104, end: 20140104
  12. NEBILOX [Concomitant]
     Active Substance: NEBIVOLOL HYDROCHLORIDE
  13. LASILIX [Concomitant]
     Active Substance: FUROSEMIDE
     Dosage: UNK
     Route: 048
     Dates: start: 20140108
  14. CORDARONE [Interacting]
     Active Substance: AMIODARONE HYDROCHLORIDE
     Dosage: 10 DF, 6 TABLETS AROUND 03:00 THEN 4 TABLETS ON MORNING
     Route: 048
     Dates: start: 20140103, end: 20140103

REACTIONS (7)
  - Cardiopulmonary failure [Unknown]
  - Drug interaction [Unknown]
  - Hypokalaemia [Unknown]
  - Chest discomfort [Unknown]
  - Electrocardiogram QT prolonged [Recovered/Resolved]
  - Atrial fibrillation [Unknown]
  - Ischaemia [Unknown]

NARRATIVE: CASE EVENT DATE: 20140103
